FAERS Safety Report 6615840-8 (Version None)
Quarter: 2010Q1

REPORT INFORMATION
  Report Type: 
  Country: None (occurrence: None)
  Receive Date: 20100305
  Receipt Date: 20091109
  Transmission Date: 20100710
  Serious: Yes (Other)
  Sender: FDA-Public Use
  Company Number: US-JNJFOC-20090804415

PATIENT
  Age: 23 Year
  Sex: Male
  Weight: 72.58 kg

DRUGS (5)
  1. NUCYNTA [Suspect]
     Indication: PAIN
     Route: 048
  2. NUCYNTA [Suspect]
     Route: 048
  3. PERCOCET [Suspect]
     Indication: DRUG USE FOR UNKNOWN INDICATION
     Route: 065
  4. SUBOXONE [Suspect]
     Indication: DRUG ABUSE
     Dosage: PRESCRIBED FOR SEVERAL MONTHS
     Route: 065
  5. SUBOXONE [Suspect]
     Indication: DEPENDENCE
     Dosage: PRESCRIBED FOR SEVERAL MONTHS
     Route: 065

REACTIONS (3)
  - DRUG ABUSE [None]
  - DRUG DEPENDENCE [None]
  - OVERDOSE [None]
